FAERS Safety Report 6051976-0 (Version None)
Quarter: 2009Q1

REPORT INFORMATION
  Report Type: 
  Country: None (occurrence: None)
  Receive Date: 20090121
  Receipt Date: 20080313
  Transmission Date: 20090719
  Serious: Yes (Other)
  Sender: FDA-Public Use
  Company Number: HQWYE205117JUL04

PATIENT
  Age: 61 Year
  Sex: Female
  Weight: 65.83 kg

DRUGS (10)
  1. PREMPRO [Suspect]
     Indication: OESTROGEN REPLACEMENT THERAPY
     Dosage: ORAL
     Route: 048
     Dates: start: 19970203, end: 19980430
  2. DELESTROGEN [Suspect]
  3. DEPO-ESTRADIOL [Suspect]
  4. DEPO-TESTADIOL [Suspect]
  5. ESTRACE [Suspect]
     Indication: OESTROGEN REPLACEMENT THERAPY
     Dosage: 2 MG ^ON AND OFF^
     Dates: start: 19900101, end: 19950501
  6. ESTRATEST [Suspect]
  7. OGEN [Suspect]
  8. PREMARIN [Suspect]
     Indication: OESTROGEN REPLACEMENT THERAPY
     Dosage: ORAL
     Route: 048
     Dates: start: 19820814, end: 19961203
  9. PROGESTERONE [Suspect]
  10. PROVERA [Suspect]
     Indication: OESTROGEN REPLACEMENT THERAPY
     Dosage: 2.5 MG, ORAL
     Route: 048
     Dates: start: 19960725, end: 19961203

REACTIONS (1)
  - BREAST CANCER [None]
